FAERS Safety Report 19751448 (Version 1)
Quarter: 2021Q3

REPORT INFORMATION
  Report Type: Spontaneous
  Country: US (occurrence: US)
  Receive Date: 20210827
  Receipt Date: 20210827
  Transmission Date: 20211014
  Serious: No
  Sender: FDA-Public Use
  Company Number: US-MAYNE PHARMA-2021MYN000069

PATIENT

DRUGS (2)
  1. FABIOR [Suspect]
     Active Substance: TAZAROTENE
     Indication: SKIN HYPERPIGMENTATION
  2. FABIOR [Suspect]
     Active Substance: TAZAROTENE
     Indication: ACNE
     Dosage: 0.1 %, AS DIRECTED
     Route: 061
     Dates: start: 202101

REACTIONS (1)
  - Condition aggravated [Unknown]
